FAERS Safety Report 19501488 (Version 2)
Quarter: 2021Q3

REPORT INFORMATION
  Report Type: Spontaneous
  Country: US (occurrence: US)
  Receive Date: 20210707
  Receipt Date: 20210820
  Transmission Date: 20211014
  Serious: No
  Sender: FDA-Public Use
  Company Number: US-GLAXOSMITHKLINE-US2021AMR147372

PATIENT
  Sex: Female

DRUGS (3)
  1. BENLYSTA [Suspect]
     Active Substance: BELIMUMAB
     Indication: PAIN
  2. BENLYSTA [Suspect]
     Active Substance: BELIMUMAB
     Indication: MIGRAINE WITHOUT AURA
     Dosage: 200 MG, Z, EVERY 7 DAYS
     Dates: start: 201909
  3. BENLYSTA [Suspect]
     Active Substance: BELIMUMAB
     Indication: MIGRAINE

REACTIONS (4)
  - Product dose omission issue [Unknown]
  - Product use in unapproved indication [Unknown]
  - Pain [Unknown]
  - Circumstance or information capable of leading to medication error [Unknown]
